FAERS Safety Report 8089676-8 (Version None)
Quarter: 2012Q1

REPORT INFORMATION
  Report Type: 
  Country: None (occurrence: None)
  Receive Date: 20120128
  Receipt Date: 20110629
  Transmission Date: 20120608
  Serious: No
  Sender: FDA-Public Use
  Company Number: US-ABBOTT-11P-163-0835944-00

PATIENT
  Sex: Female
  Weight: 72.64 kg

DRUGS (4)
  1. HUMIRA [Suspect]
     Route: 058
     Dates: start: 20110401
  2. IBUPROFEN [Concomitant]
     Indication: ARTHRALGIA
     Dosage: EVERY 12 HOURS AS NEEDED
     Route: 050
  3. IBUPROFEN [Concomitant]
  4. HUMIRA [Suspect]
     Indication: RHEUMATOID ARTHRITIS
     Route: 058
     Dates: start: 20100801, end: 20110401

REACTIONS (3)
  - DRUG INEFFECTIVE [None]
  - ARTHRITIS [None]
  - BLISTER [None]
